FAERS Safety Report 16940417 (Version 2)
Quarter: 2019Q4

REPORT INFORMATION
  Report Type: Report from Study
  Country: JP (occurrence: JP)
  Receive Date: 20191021
  Receipt Date: 20191128
  Transmission Date: 20200122
  Serious: Yes (Life-Threatening)
  Sender: FDA-Public Use
  Company Number: JP-ACTELION-A-CH2019-193425

PATIENT
  Age: 85 Year
  Sex: Female

DRUGS (14)
  1. CANDESARTAN. [Concomitant]
     Active Substance: CANDESARTAN
  2. ADCIRCA [Concomitant]
     Active Substance: TADALAFIL
  3. OPSUMIT [Suspect]
     Active Substance: MACITENTAN
     Indication: PULMONARY ARTERIAL HYPERTENSION
     Dosage: 10 MG, QD
     Route: 048
     Dates: start: 20180328, end: 20180625
  4. AMLODIPINE [Concomitant]
     Active Substance: AMLODIPINE BESYLATE
  5. ATORVASTATIN [Concomitant]
     Active Substance: ATORVASTATIN
  6. LIXIANA [Concomitant]
     Active Substance: EDOXABAN TOSYLATE
  7. CELECOX [Concomitant]
     Active Substance: CELECOXIB
  8. MAGMITT [Concomitant]
     Active Substance: MAGNESIUM OXIDE
  9. RABEPRAZOLE NA [Concomitant]
     Active Substance: RABEPRAZOLE SODIUM
  10. REBAMIPIDE [Concomitant]
     Active Substance: REBAMIPIDE
  11. DEPAS [Concomitant]
  12. CARELOAD [Concomitant]
     Active Substance: BERAPROST SODIUM
  13. OXYGEN. [Concomitant]
     Active Substance: OXYGEN
  14. TRIAZOLAM. [Concomitant]
     Active Substance: TRIAZOLAM

REACTIONS (3)
  - Concomitant disease aggravated [Recovering/Resolving]
  - Pulmonary congestion [Recovering/Resolving]
  - Lung diffusion test decreased [Recovering/Resolving]

NARRATIVE: CASE EVENT DATE: 20180625
